FAERS Safety Report 8493172-3 (Version None)
Quarter: 2012Q3

REPORT INFORMATION
  Report Type: 
  Country: None (occurrence: None)
  Receive Date: 20120706
  Receipt Date: 20120703
  Transmission Date: 20120928
  Serious: Yes (Hospitalization)
  Sender: FDA-Public Use
  Company Number: US-GILEAD-2012-0057314

PATIENT
  Sex: Male

DRUGS (3)
  1. LETAIRIS [Suspect]
     Indication: PULMONARY VASCULAR DISORDER
  2. LETAIRIS [Suspect]
     Indication: PULMONARY HYPERTENSION
     Dosage: 5 MG, UNK
     Route: 048
     Dates: start: 20120526, end: 20120612
  3. LETAIRIS [Suspect]
     Indication: LUNG DISORDER

REACTIONS (3)
  - SEPSIS [None]
  - HYPOTENSION [None]
  - RESPIRATORY FAILURE [None]
